FAERS Safety Report 19594913 (Version 1)
Quarter: 2021Q3

REPORT INFORMATION
  Report Type: Spontaneous
  Country: GB (occurrence: GB)
  Receive Date: 20210722
  Receipt Date: 20210722
  Transmission Date: 20211014
  Serious: Yes (Hospitalization)
  Sender: FDA-Public Use
  Company Number: GB-TEVA-2021-GB-1933551

PATIENT
  Age: 30 Year
  Sex: Female

DRUGS (12)
  1. SYNTOCINON [Suspect]
     Active Substance: OXYTOCIN
     Indication: LABOUR INDUCTION
     Route: 065
  2. BENZYLPENICILLIN [Suspect]
     Active Substance: PENICILLIN G
     Indication: PRODUCT USED FOR UNKNOWN INDICATION
     Route: 042
  3. FENTANYL. [Suspect]
     Active Substance: FENTANYL
     Indication: ANAESTHESIA
     Dosage: 100MCG
     Route: 008
  4. FENTANYL. [Suspect]
     Active Substance: FENTANYL
     Dosage: 2 MICROGRAMS.ML?1
     Route: 008
  5. FOLIC ACID. [Suspect]
     Active Substance: FOLIC ACID
     Indication: PROPHYLAXIS
     Route: 065
  6. EPHEDRINE. [Suspect]
     Active Substance: EPHEDRINE
     Indication: HYPOTENSION
     Dosage: 6MG
     Route: 065
  7. GELAFUSINE (GELATIN) [Suspect]
     Active Substance: GELATIN
     Indication: BLOOD PRESSURE MANAGEMENT
     Dosage: 500ML
     Route: 065
  8. PHENYLEPHRINE [Suspect]
     Active Substance: PHENYLEPHRINE HYDROCHLORIDE
     Indication: BLOOD PRESSURE MANAGEMENT
     Dosage: 2 BOLUSES, 50MCG
     Route: 065
  9. HARTMANS SOLUTION [CALCIUM CHLORIDE/POTASSIUM CHLORIDE/SODIUM CHLORIDE/SODIUM LACTATE] [Suspect]
     Active Substance: CALCIUM CHLORIDE\POTASSIUM CHLORIDE\SODIUM CHLORIDE\SODIUM LACTATE
     Indication: HYPOTENSION
     Dosage: 1000ML, FLUID BOLUS
     Route: 050
  10. BUPIVACAINE. [Suspect]
     Active Substance: BUPIVACAINE
     Indication: ANAESTHESIA
     Dosage: 0.5%, 2.5ML
     Route: 008
  11. BUPIVACAINE. [Suspect]
     Active Substance: BUPIVACAINE
     Dosage: 0.125%, 10ML
     Route: 008
  12. BUPIVACAINE. [Suspect]
     Active Substance: BUPIVACAINE
     Dosage: 0.25%, 5ML
     Route: 008

REACTIONS (6)
  - Tachycardia [Recovered/Resolved]
  - Vomiting [Recovered/Resolved]
  - Hypotension [Recovered/Resolved]
  - Maternal exposure during pregnancy [Unknown]
  - Cough [Recovered/Resolved]
  - Live birth [Unknown]
